FAERS Safety Report 6779139-1 (Version None)
Quarter: 2010Q2

REPORT INFORMATION
  Report Type: 
  Country: None (occurrence: None)
  Receive Date: 20100618
  Receipt Date: 20100609
  Transmission Date: 20101027
  Serious: Yes (Hospitalization)
  Sender: FDA-Public Use
  Company Number: CH-ASTRAZENECA-2010SE26941

PATIENT
  Age: 30 Year
  Sex: Male

DRUGS (1)
  1. TENORMIN [Suspect]
     Route: 048
     Dates: start: 20100416, end: 20100419

REACTIONS (3)
  - BRADYCARDIA [None]
  - PARAESTHESIA [None]
  - SPEECH DISORDER [None]
